FAERS Safety Report 10839012 (Version 2)
Quarter: 2015Q1

REPORT INFORMATION
  Report Type: Spontaneous
  Country: None (occurrence: None)
  Receive Date: 20150218
  Receipt Date: 20150303
  Transmission Date: 20150721
  Serious: Yes (Hospitalization)
  Sender: FDA-Public Use
  Company Number: US-SEPTODONT-201502501

PATIENT
  Age: 30 Year
  Sex: Female

DRUGS (2)
  1. ORABLOC [Suspect]
     Active Substance: ARTICAINE HYDROCHLORIDE\EPINEPHRINE BITARTRATE
     Indication: LOCAL ANAESTHESIA
     Dosage: 1 DF TOTAL DENTAL
     Route: 004
  2. LIDOCAINE HYDROCHLORIDE 2% WITH EPINEPHRINE 1:100,000 INJECTION LIDOCAINE HYDROCHLORIDE; EPINEPHRINE BITARTRATE [Suspect]
     Active Substance: EPINEPHRINE\LIDOCAINE HYDROCHLORIDE
     Indication: LOCAL ANAESTHESIA
     Dosage: 2 DF TOTAL DENTAL?
     Route: 004

REACTIONS (6)
  - Blood pressure immeasurable [None]
  - Blood pressure increased [None]
  - Palpitations [None]
  - Dysphagia [None]
  - Oropharyngeal discomfort [None]
  - Dizziness [None]
